FAERS Safety Report 9206228 (Version 2)
Quarter: 2013Q2

REPORT INFORMATION
  Report Type: Spontaneous
  Country: US (occurrence: US)
  Receive Date: 20130403
  Receipt Date: 20130522
  Transmission Date: 20140414
  Serious: No
  Sender: FDA-Public Use
  Company Number: US-PFIZER INC-2013100989

PATIENT
  Age: 43 Year
  Sex: Female
  Weight: 58.9 kg

DRUGS (1)
  1. ADVIL PM [Suspect]
     Indication: PAIN
     Dosage: UNK
     Dates: start: 2012, end: 2012

REACTIONS (3)
  - Restlessness [Recovered/Resolved]
  - Poor quality sleep [Recovered/Resolved]
  - Vertigo [Recovered/Resolved]
